FAERS Safety Report 18235751 (Version 2)
Quarter: 2020Q3

REPORT INFORMATION
  Report Type: Spontaneous
  Country: NL (occurrence: NL)
  Receive Date: 20200905
  Receipt Date: 20200910
  Transmission Date: 20201103
  Serious: Yes (Hospitalization)
  Sender: FDA-Public Use
  Company Number: NL-TEVA-2020-NL-1822967

PATIENT
  Sex: Male
  Weight: 82 kg

DRUGS (4)
  1. METOPROLOL TABLET MGA  25MG (SUCCINAAT) / BRAND NAME NOT SPECIFIED [Concomitant]
     Dosage: 25 MG , THERAPY START DATE AND END DATE: ASKU
  2. ATORVASTATINE TABLET 20MG / BRAND NAME NOT SPECIFIED [Concomitant]
     Active Substance: ATORVASTATIN
     Dosage: 20 MG, THERAPY START DATE AND END DATE: ASKU
  3. LOSARTAN TABLET FO 100MG / COZAAR TABLET FILMOMHULD 100MG [Concomitant]
     Dosage: 100MG, THERAPY START DATE AND END DATE: ASKU
  4. HYDROCHLOORTHIAZIDE TABLET 12,5MG / BRAND NAME NOT SPECIFIED [Suspect]
     Active Substance: HYDROCHLOROTHIAZIDE
     Indication: DIURETIC THERAPY
     Dosage: 12.5 MILLIGRAM DAILY; THERAPY END DATE: ASKU
     Route: 065
     Dates: start: 2012

REACTIONS (2)
  - Pancreatitis [Recovering/Resolving]
  - Body temperature increased [Recovering/Resolving]
